FAERS Safety Report 12343162 (Version 1)
Quarter: 2016Q2

REPORT INFORMATION
  Report Type: Spontaneous
  Country: CA (occurrence: CA)
  Receive Date: 20160506
  Receipt Date: 20160506
  Transmission Date: 20160815
  Serious: Yes (Other)
  Sender: FDA-Public Use
  Company Number: PHHY2016CA060925

PATIENT
  Sex: Female

DRUGS (1)
  1. CICLOSPORIN SANDOZ [Suspect]
     Active Substance: CYCLOSPORINE
     Indication: PSORIASIS
     Route: 048

REACTIONS (6)
  - Impaired work ability [Unknown]
  - Tremor [Unknown]
  - Renal impairment [Unknown]
  - Hepatic function abnormal [Unknown]
  - Fatigue [Unknown]
  - Drug ineffective [Unknown]
